FAERS Safety Report 12501601 (Version 2)
Quarter: 2016Q4

REPORT INFORMATION
  Report Type: Spontaneous
  Country: US (occurrence: US)
  Receive Date: 20160627
  Receipt Date: 20161214
  Transmission Date: 20170207
  Serious: Yes (Life-Threatening, Hospitalization, Other)
  Sender: FDA-Public Use
  Company Number: US-SA-2016SA118395

PATIENT
  Age: 60 Year
  Sex: Female
  Weight: 77.6 kg

DRUGS (17)
  1. MICAFUNGIN [Concomitant]
     Active Substance: MICAFUNGIN
     Indication: PROPHYLAXIS
  2. ATIVAN [Concomitant]
     Active Substance: LORAZEPAM
  3. FAMOTIDINE. [Concomitant]
     Active Substance: FAMOTIDINE
     Route: 048
     Dates: start: 20160502
  4. SIROLIMUS. [Concomitant]
     Active Substance: SIROLIMUS
  5. TACROLIMUS. [Concomitant]
     Active Substance: TACROLIMUS
  6. IPRATROPIUM [Concomitant]
     Active Substance: IPRATROPIUM
  7. MELPHALAN [Suspect]
     Active Substance: MELPHALAN
     Indication: BONE MARROW CONDITIONING REGIMEN
     Route: 042
     Dates: start: 20160606, end: 20160606
  8. LEVOTHYROXINE. [Concomitant]
     Active Substance: LEVOTHYROXINE
     Route: 048
     Dates: start: 20160502
  9. MEROPENEM. [Concomitant]
     Active Substance: MEROPENEM
     Indication: ANTI-INFECTIVE THERAPY
  10. LEXAPRO [Concomitant]
     Active Substance: ESCITALOPRAM OXALATE
  11. LYRICA [Concomitant]
     Active Substance: PREGABALIN
  12. ACTIGALL [Concomitant]
     Active Substance: URSODIOL
  13. ACYCLOVIR. [Concomitant]
     Active Substance: ACYCLOVIR
     Indication: PROPHYLAXIS
  14. CLOLAR [Suspect]
     Active Substance: CLOFARABINE
     Indication: BONE MARROW CONDITIONING REGIMEN
     Route: 042
     Dates: start: 20160601, end: 20160605
  15. VANCOMYCIN [Concomitant]
     Active Substance: VANCOMYCIN
     Indication: ANTI-INFECTIVE THERAPY
     Route: 048
  16. MS CONTIN [Concomitant]
     Active Substance: MORPHINE SULFATE
  17. ALBUTEROL. [Concomitant]
     Active Substance: ALBUTEROL

REACTIONS (26)
  - Acute respiratory distress syndrome [Unknown]
  - Enterococcal infection [Unknown]
  - Dyspnoea [Unknown]
  - Tachycardia [Unknown]
  - Hypoxia [Unknown]
  - Atelectasis [Recovering/Resolving]
  - Palmar-plantar erythrodysaesthesia syndrome [Unknown]
  - Anaemia [Unknown]
  - Agitation [Unknown]
  - White blood cell count decreased [Unknown]
  - Septic shock [Recovered/Resolved]
  - Febrile neutropenia [Unknown]
  - Pleural effusion [Recovering/Resolving]
  - Stomatitis [Unknown]
  - Clostridium test positive [Recovered/Resolved]
  - Respiratory failure [Recovered/Resolved]
  - Hypotension [Unknown]
  - Acute kidney injury [Unknown]
  - Fluid overload [Unknown]
  - Platelet count decreased [Unknown]
  - Neutrophil count decreased [Unknown]
  - Blood bilirubin increased [Unknown]
  - Anxiety [Unknown]
  - Pyrexia [Unknown]
  - Dyspnoea [Recovered/Resolved]
  - Blood electrolytes abnormal [Unknown]

NARRATIVE: CASE EVENT DATE: 20160602
